FAERS Safety Report 9657207 (Version 1)
Quarter: 2013Q4

REPORT INFORMATION
  Report Type: Spontaneous
  Country: US (occurrence: US)
  Receive Date: 20131030
  Receipt Date: 20131030
  Transmission Date: 20140711
  Serious: Yes (Other)
  Sender: FDA-Public Use
  Company Number: US-BAYER-2013-129841

PATIENT
  Age: 23 Year
  Sex: Female

DRUGS (1)
  1. MIRENA [Suspect]
     Dosage: UNK
     Dates: start: 2010

REACTIONS (5)
  - Vaginal haemorrhage [Not Recovered/Not Resolved]
  - Pregnancy with contraceptive device [None]
  - Abdominal distension [None]
  - Amenorrhoea [None]
  - Cervical discharge [Recovered/Resolved]
